FAERS Safety Report 8766521 (Version 1)
Quarter: 2012Q4

REPORT INFORMATION
  Report Type: 
  Country: US (occurrence: US)
  Receive Date: 20120905
  Receipt Date: 20120905
  Transmission Date: 20130627
  Serious: Yes (Death)
  Sender: FDA-Public Use
  Company Number: US-ASTRAZENECA-2006UW16057

PATIENT
  Age: 36 Year
  Sex: Female
  Weight: 87.1 kg

DRUGS (19)
  1. SEROQUEL [Suspect]
     Indication: BIPOLAR DISORDER
     Route: 048
     Dates: start: 20060418
  2. SEROQUEL [Suspect]
     Indication: DEPRESSION
     Route: 048
     Dates: start: 20060418
  3. SEROQUEL [Suspect]
     Indication: BIPOLAR DISORDER
     Route: 048
     Dates: start: 200304, end: 20060418
  4. SEROQUEL [Suspect]
     Indication: DEPRESSION
     Route: 048
     Dates: start: 200304, end: 20060418
  5. SEROQUEL [Suspect]
     Indication: BIPOLAR DISORDER
     Route: 048
     Dates: start: 200207
  6. SEROQUEL [Suspect]
     Indication: DEPRESSION
     Route: 048
     Dates: start: 200207
  7. SEROQUEL [Suspect]
     Indication: BIPOLAR DISORDER
     Route: 048
     Dates: start: 200206
  8. SEROQUEL [Suspect]
     Indication: DEPRESSION
     Route: 048
     Dates: start: 200206
  9. SEROQUEL [Suspect]
     Indication: BIPOLAR DISORDER
     Route: 048
  10. SEROQUEL [Suspect]
     Indication: DEPRESSION
     Route: 048
  11. METHADONE [Suspect]
     Route: 065
  12. IMIPRAMINE [Concomitant]
  13. TRANZADINE [Concomitant]
  14. GABAPENTINE [Concomitant]
  15. NEURONTIN [Concomitant]
  16. WELLBUTRIN [Concomitant]
  17. DIAZEPAM [Concomitant]
  18. LEVOXYL [Concomitant]
  19. METFORMIN [Concomitant]

REACTIONS (3)
  - Hepatic steatosis [Fatal]
  - Diabetes mellitus [Unknown]
  - Toxicity to various agents [Fatal]
